FAERS Safety Report 5465408-4 (Version None)
Quarter: 2007Q3

REPORT INFORMATION
  Report Type: 
  Country: None (occurrence: None)
  Receive Date: 20070924
  Receipt Date: 20070914
  Transmission Date: 20080115
  Serious: Yes (Other)
  Sender: FDA-Public Use
  Company Number: US-JNJFOC-20070903100

PATIENT
  Sex: Male
  Weight: 122.47 kg

DRUGS (3)
  1. REMICADE [Suspect]
     Indication: COLITIS ULCERATIVE
     Dosage: 4 TOTAL INFUSIONS
     Route: 042
  2. DIOVAN [Concomitant]
     Indication: HYPERTENSION
  3. FLOMAX [Concomitant]

REACTIONS (4)
  - COLITIS ULCERATIVE [None]
  - FLATULENCE [None]
  - HAEMATOCHEZIA [None]
  - THERAPEUTIC RESPONSE DECREASED [None]
